FAERS Safety Report 26072727 (Version 1)
Quarter: 2025Q4

REPORT INFORMATION
  Report Type: Spontaneous
  Country: RU (occurrence: RU)
  Receive Date: 20251121
  Receipt Date: 20251121
  Transmission Date: 20260117
  Serious: Yes (Other)
  Sender: ROCHE
  Company Number: RU-ROCHE-10000436669

PATIENT
  Age: 64 Year

DRUGS (1)
  1. ATEZOLIZUMAB [Suspect]
     Active Substance: ATEZOLIZUMAB
     Indication: Lung carcinoma cell type unspecified stage IV
     Route: 042
     Dates: start: 202111

REACTIONS (2)
  - Leukopenia [Unknown]
  - Neutropenia [Unknown]
